FAERS Safety Report 8095649-1 (Version None)
Quarter: 2012Q1

REPORT INFORMATION
  Report Type: 
  Country: None (occurrence: None)
  Receive Date: 20120129
  Receipt Date: 20111215
  Transmission Date: 20120608
  Serious: No
  Sender: FDA-Public Use
  Company Number: US-ABBOTT-11P-163-0883881-00

PATIENT
  Age: 44 Year
  Sex: Female

DRUGS (4)
  1. ZOLOFT [Concomitant]
     Indication: DEPRESSION
  2. HUMIRA [Suspect]
     Indication: CROHN'S DISEASE
     Dates: start: 20110817
  3. BENADRYL [Concomitant]
     Indication: INSOMNIA
  4. LEVSIN [Concomitant]
     Indication: GASTROINTESTINAL PAIN
     Dosage: AS REQUIRED

REACTIONS (6)
  - ASTHENIA [None]
  - DRUG INEFFECTIVE [None]
  - DEFAECATION URGENCY [None]
  - INJECTION SITE PAIN [None]
  - OROPHARYNGEAL PAIN [None]
  - FREQUENT BOWEL MOVEMENTS [None]
